FAERS Safety Report 23078690 (Version 1)
Quarter: 2023Q4

REPORT INFORMATION
  Report Type: Spontaneous
  Country: FR (occurrence: FR)
  Receive Date: 20231018
  Receipt Date: 20231018
  Transmission Date: 20240109
  Serious: Yes (Life-Threatening)
  Sender: FDA-Public Use
  Company Number: None

PATIENT
  Age: 61 Year
  Sex: Female
  Weight: 80 kg

DRUGS (7)
  1. CLONAZEPAM [Suspect]
     Active Substance: CLONAZEPAM
     Indication: Product administration error
     Dosage: 1 TABLET OF 2 MG ADMINISTERED AT 9 A.M. ON 08/31/23
     Route: 048
     Dates: start: 20230831, end: 20230831
  2. CLOZAPINE [Suspect]
     Active Substance: CLOZAPINE
     Indication: Product administration error
     Dosage: 3 TABLETS OF 100MG WERE ADMINISTERED TO THE PATIENT AT 9AM ON 31/08/23
     Route: 048
     Dates: start: 20230831, end: 20230831
  3. CYAMEMAZINE [Suspect]
     Active Substance: CYAMEMAZINE
     Indication: Product administration error
     Route: 048
     Dates: start: 20230831, end: 20230831
  4. DEPAKOTE [Concomitant]
     Active Substance: DIVALPROEX SODIUM
     Dosage: DAILY DOSE: 500 MILLIGRAM
  5. METHOTREXATE [Concomitant]
     Active Substance: METHOTREXATE
     Dosage: DAILY DOSE: 5 MILLIGRAM
  6. BACLOFEN [Concomitant]
     Active Substance: BACLOFEN
     Dosage: DAILY DOSE: 10 MILLIGRAM
  7. LEVOTHYROXINE [Concomitant]
     Active Substance: LEVOTHYROXINE
     Dosage: DAILY DOSE: 100 MICROGRAM

REACTIONS (3)
  - Coma [Recovered/Resolved]
  - Electrocardiogram QT prolonged [Recovered/Resolved]
  - Product administered by wrong person [Recovered/Resolved]

NARRATIVE: CASE EVENT DATE: 20230831
